FAERS Safety Report 5484288-4 (Version None)
Quarter: 2007Q4

REPORT INFORMATION
  Report Type: 
  Country: None (occurrence: None)
  Receive Date: 20071012
  Receipt Date: 20071010
  Transmission Date: 20080405
  Serious: No
  Sender: FDA-Public Use
  Company Number: US-BOEHRINGER INGELHEIM PHARMACEUTICALS, INC.-2007-BP-04100BP

PATIENT
  Age: 68 Year
  Sex: Male
  Weight: 97 kg

DRUGS (8)
  1. MIRAPEX [Suspect]
     Indication: RESTLESS LEGS SYNDROME
     Route: 048
     Dates: start: 20070130, end: 20070308
  2. GLYBURIDE [Concomitant]
  3. ASPIRIN [Concomitant]
  4. TOPROL XE [Concomitant]
  5. ALTACE [Concomitant]
  6. ACTOS [Concomitant]
  7. CAL MAG [Concomitant]
  8. VITAMIN [Concomitant]

REACTIONS (13)
  - BLOOD GLUCOSE INCREASED [None]
  - CEREBROVASCULAR ACCIDENT [None]
  - CHEST PAIN [None]
  - DIARRHOEA [None]
  - DIZZINESS [None]
  - EAR PAIN [None]
  - GAIT DISTURBANCE [None]
  - HEADACHE [None]
  - INSOMNIA [None]
  - PAIN IN EXTREMITY [None]
  - PARAESTHESIA [None]
  - SYNCOPE [None]
  - VISION BLURRED [None]
